FAERS Safety Report 21465596 (Version 1)
Quarter: 2022Q4

REPORT INFORMATION
  Report Type: Spontaneous
  Country: US (occurrence: None)
  Receive Date: 20221014
  Receipt Date: 20221014
  Transmission Date: 20230113
  Serious: No
  Sender: FDA-Public Use
  Company Number: None

PATIENT

DRUGS (2)
  1. NPLATE [Suspect]
     Active Substance: ROMIPLOSTIM
     Route: 058
  2. NPLATE [Suspect]
     Active Substance: ROMIPLOSTIM
     Route: 058

REACTIONS (4)
  - Product reconstitution quality issue [None]
  - Product label confusion [None]
  - Product label issue [None]
  - Product design issue [None]
